FAERS Safety Report 7363073-2 (Version None)
Quarter: 2011Q1

REPORT INFORMATION
  Report Type: 
  Country: None (occurrence: None)
  Receive Date: 20110321
  Receipt Date: 20110311
  Transmission Date: 20110831
  Serious: Yes (Other)
  Sender: FDA-Public Use
  Company Number: US-PFIZER INC-2007021363

PATIENT
  Sex: Female

DRUGS (1)
  1. NEURONTIN [Suspect]
     Indication: PAIN

REACTIONS (2)
  - DRUG INEFFECTIVE [None]
  - SUICIDE ATTEMPT [None]
